FAERS Safety Report 9472433 (Version 1)
Quarter: 2013Q3

REPORT INFORMATION
  Report Type: Report from Study
  Country: US (occurrence: US)
  Receive Date: 20130823
  Receipt Date: 20130823
  Transmission Date: 20140515
  Serious: Yes (Other)
  Sender: FDA-Public Use
  Company Number: US-PFIZER INC-2013242880

PATIENT
  Age: 42 Year
  Sex: Female

DRUGS (2)
  1. DILANTIN-125 [Suspect]
     Indication: CONVULSION
     Dosage: UNK
  2. COPAXONE [Suspect]
     Indication: MULTIPLE SCLEROSIS
     Dosage: UNK
     Dates: start: 20130322

REACTIONS (4)
  - Toxicity to various agents [Unknown]
  - Fall [Unknown]
  - Loss of consciousness [Unknown]
  - Vertigo [Unknown]
